FAERS Safety Report 8097298-8 (Version None)
Quarter: 2012Q1

REPORT INFORMATION
  Report Type: 
  Country: None (occurrence: None)
  Receive Date: 20120128
  Receipt Date: 20110627
  Transmission Date: 20120608
  Serious: Yes (Other)
  Sender: FDA-Public Use
  Company Number: US-ABBOTT-11P-163-0835237-00

PATIENT
  Age: 57 Year
  Sex: Female

DRUGS (11)
  1. HUMIRA [Suspect]
     Indication: RHEUMATOID ARTHRITIS
     Dates: start: 20110501
  2. ENALAPRIL [Concomitant]
     Indication: HYPERTENSION
  3. ALOE VERA [Concomitant]
     Indication: PRODUCT USED FOR UNKNOWN INDICATION
  4. HUMIRA [Suspect]
     Dates: end: 20110301
  5. HYDROCHLOROTHIAZIDE [Concomitant]
     Indication: HYPERTENSION
  6. FOLIC ACID [Concomitant]
     Indication: PRODUCT USED FOR UNKNOWN INDICATION
     Dosage: DAILY DOSE: 1MG
  7. METHOTREXATE [Concomitant]
     Indication: PRODUCT USED FOR UNKNOWN INDICATION
  8. ENABLEX [Concomitant]
     Indication: URINARY INCONTINENCE
  9. NOVALOG INSULIN PUMP [Concomitant]
     Indication: DIABETES MELLITUS
  10. KEFLEX [Concomitant]
     Indication: STAPHYLOCOCCAL INFECTION
  11. PROTONICS [Concomitant]
     Indication: PRODUCT USED FOR UNKNOWN INDICATION

REACTIONS (9)
  - DYSPEPSIA [None]
  - HYPERTENSION [None]
  - INAPPROPRIATE SCHEDULE OF DRUG ADMINISTRATION [None]
  - BACK PAIN [None]
  - ULCER HAEMORRHAGE [None]
  - STAPHYLOCOCCAL INFECTION [None]
  - URINARY INCONTINENCE [None]
  - DRUG DOSE OMISSION [None]
  - SKIN LESION [None]
